FAERS Safety Report 8878984 (Version 4)
Quarter: 2013Q1

REPORT INFORMATION
  Report Type: Spontaneous
  Country: US (occurrence: US)
  Receive Date: 20121026
  Receipt Date: 20121226
  Transmission Date: 20140127
  Serious: Yes (Death)
  Sender: FDA-Public Use
  Company Number: US-ASTRAZENECA-2012SE77098

PATIENT
  Age: 29639 Day
  Sex: Male
  Weight: 63.5 kg

DRUGS (9)
  1. SYMBICORT [Suspect]
     Indication: CHRONIC OBSTRUCTIVE PULMONARY DISEASE
     Dosage: 160/4.5 MCG, 2 PUFFS, BID
     Route: 055
     Dates: start: 20120320
  2. SYMBICORT [Suspect]
     Indication: LUNG NEOPLASM MALIGNANT
     Dosage: 160/4.5 MCG, 2 PUFFS, BID
     Route: 055
     Dates: start: 20120320
  3. TOPROL XL [Suspect]
     Indication: HYPERTENSION
     Route: 048
  4. PREVASTATIN [Concomitant]
     Indication: BLOOD CHOLESTEROL ABNORMAL
     Route: 048
  5. RECLAST [Concomitant]
     Indication: OSTEOPOROSIS
     Dosage: YEAR
     Route: 042
  6. HYTRIN [Concomitant]
     Indication: PROSTATIC DISORDER
     Route: 048
     Dates: start: 1999
  7. LUPRON [Concomitant]
     Indication: PROSTATIC DISORDER
  8. UNKNOWN HIGH BLOOD PRESSURE DRUG [Concomitant]
     Indication: HYPERTENSION
     Dosage: BID
     Route: 048
     Dates: start: 201202
  9. LEVOTHYROXINE [Concomitant]
     Indication: THYROID DISORDER
     Dosage: DAILY
     Route: 048
     Dates: start: 2009

REACTIONS (4)
  - Death [Fatal]
  - Cough [Unknown]
  - Off label use [Not Recovered/Not Resolved]
  - Drug dose omission [Unknown]
